FAERS Safety Report 10383831 (Version 1)
Quarter: 2014Q1

REPORT INFORMATION
  Report Type: Spontaneous
  Country: US (occurrence: None)
  Receive Date: 20140306
  Receipt Date: 20140306
  Transmission Date: 20141002
  Serious: Yes (Disabling, Other)
  Sender: FDA-Public Use
  Company Number: 163-21880-13113316

PATIENT
  Age: 56 Year
  Sex: Female
  Weight: 43.55 kg

DRUGS (3)
  1. REVLIMID (LENALIDOMIDE) (25 MILLIGRAM, CAPSULES) [Suspect]
     Indication: PLASMA CELL MYELOMA
     Dosage: 21 IN 28 D
     Route: 048
     Dates: start: 201211, end: 201301
  2. VELCADE (BORTEXZOMIB) [Concomitant]
     Indication: PLASMA CELL MYELOMA
  3. DEXAMETHASONE (DEXAMETHASONE( [Concomitant]

REACTIONS (3)
  - Plasma cell myeloma [None]
  - Pancytopenia [None]
  - Pain [None]
